FAERS Safety Report 5732451-7 (Version None)
Quarter: 2008Q2

REPORT INFORMATION
  Report Type: 
  Country: None (occurrence: None)
  Receive Date: 20080508
  Receipt Date: 20080428
  Transmission Date: 20081010
  Serious: Yes (Other)
  Sender: FDA-Public Use
  Company Number: JP-AMGEN-US273269

PATIENT
  Sex: Female

DRUGS (5)
  1. ENBREL [Suspect]
     Indication: RHEUMATOID ARTHRITIS
     Route: 058
     Dates: start: 20080219, end: 20080326
  2. PREDONINE [Concomitant]
     Route: 048
     Dates: end: 20080201
  3. METHOTREXATE [Concomitant]
     Dosage: UNKNOWN
     Route: 048
     Dates: end: 20080201
  4. METHOTREXATE [Concomitant]
     Dosage: 4 MG
     Dates: start: 20080301, end: 20080301
  5. METHOTREXATE [Concomitant]
     Dosage: 6 MG
     Dates: start: 20080301

REACTIONS (3)
  - DRUG ERUPTION [None]
  - ERYTHEMA [None]
  - MALAISE [None]
